FAERS Safety Report 4923674-5 (Version None)
Quarter: 2006Q1

REPORT INFORMATION
  Report Type: 
  Country: None (occurrence: None)
  Receive Date: 20060224
  Receipt Date: 20060224
  Transmission Date: 20060701
  Serious: Yes (Death)
  Sender: FDA-Public Use
  Company Number: None

PATIENT
  Age: 21 Year
  Sex: Male

DRUGS (1)
  1. RITALIN [Suspect]
     Indication: NARCOLEPSY
     Dosage: 10 MG 6 TIMES DAILY
     Dates: start: 19930201, end: 19991021

REACTIONS (2)
  - CIRCULATORY COLLAPSE [None]
  - MYOCARDIAL FIBROSIS [None]
